FAERS Safety Report 14012151 (Version 3)
Quarter: 2017Q4

REPORT INFORMATION
  Report Type: Report from Study
  Country: CN (occurrence: CN)
  Receive Date: 20170926
  Receipt Date: 20171020
  Transmission Date: 20180321
  Serious: Yes (Death, Hospitalization, Other)
  Sender: FDA-Public Use
  Company Number: CN-BAYER-2017-177857

PATIENT
  Sex: Male

DRUGS (1)
  1. REGORAFENIB [Suspect]
     Active Substance: REGORAFENIB
     Indication: COLORECTAL CANCER
     Dosage: 160 MG, QD
     Route: 048
     Dates: start: 20170705

REACTIONS (16)
  - Death [Fatal]
  - Depression [None]
  - Feeling abnormal [None]
  - Insomnia [None]
  - Loss of personal independence in daily activities [None]
  - Gait inability [None]
  - Eye disorder [None]
  - Somnolence [None]
  - Nausea [None]
  - Protein total decreased [Not Recovered/Not Resolved]
  - Limb discomfort [None]
  - Decreased appetite [None]
  - Decreased appetite [Not Recovered/Not Resolved]
  - Asthenia [None]
  - Fatigue [None]
  - Palmar-plantar erythrodysaesthesia syndrome [None]
